FAERS Safety Report 8820443 (Version 1)
Quarter: 2012Q4

REPORT INFORMATION
  Report Type: 
  Country: US (occurrence: US)
  Receive Date: 20121002
  Receipt Date: 20121002
  Transmission Date: 20130627
  Serious: Yes (Congenital Anomaly)
  Sender: FDA-Public Use
  Company Number: US-FRI-1000039041

PATIENT
  Age: 0 Year
  Sex: Male

DRUGS (1)
  1. CELEXA [Suspect]
     Route: 064

REACTIONS (2)
  - Anal atresia [Unknown]
  - Congenital anomaly [Unknown]
